FAERS Safety Report 7680069-1 (Version None)
Quarter: 2011Q3

REPORT INFORMATION
  Report Type: 
  Country: None (occurrence: None)
  Receive Date: 20110812
  Receipt Date: 20110805
  Transmission Date: 20111222
  Serious: Yes (Life-Threatening, Hospitalization, Other)
  Sender: FDA-Public Use
  Company Number: GB-ROCHE-762390

PATIENT
  Sex: Female

DRUGS (3)
  1. TORADOL [Suspect]
     Indication: UNEVALUABLE EVENT
     Route: 065
  2. IBUPROFEN [Suspect]
     Route: 065
  3. MORPHINE [Suspect]
     Route: 065

REACTIONS (9)
  - HAEMATOMA [None]
  - HAEMORRHAGE [None]
  - INFREQUENT BOWEL MOVEMENTS [None]
  - ARTERIAL INJURY [None]
  - HYPOVOLAEMIC SHOCK [None]
  - DEAFNESS [None]
  - BLINDNESS [None]
  - BLOOD PRESSURE DECREASED [None]
  - EPIGASTRIC DISCOMFORT [None]
